FAERS Safety Report 7984861-5 (Version None)
Quarter: 2011Q4

REPORT INFORMATION
  Report Type: 
  Country: None (occurrence: None)
  Receive Date: 20111216
  Receipt Date: 20111019
  Transmission Date: 20120403
  Serious: No
  Sender: FDA-Public Use
  Company Number: US-ALLERGAN-1112844US

PATIENT
  Age: 54 Year
  Sex: Female

DRUGS (4)
  1. METOPROLOL TARTRATE [Concomitant]
     Indication: HYPERTENSION
     Dosage: UNK
     Dates: start: 20110301
  2. SLEEP MEDICATION [Concomitant]
     Indication: SLEEP DISORDER
     Dosage: UNK
     Dates: start: 20110301
  3. ANTI-ANXIETY MEDICATION [Concomitant]
     Indication: ANXIETY
     Dosage: UNK
     Dates: start: 20110301
  4. LATISSE [Suspect]
     Indication: MADAROSIS
     Dosage: UNK
     Route: 061

REACTIONS (2)
  - HAIR GROWTH ABNORMAL [None]
  - MADAROSIS [None]
